FAERS Safety Report 17162173 (Version 1)
Quarter: 2019Q4

REPORT INFORMATION
  Report Type: Spontaneous
  Country: US (occurrence: US)
  Receive Date: 20191217
  Receipt Date: 20191217
  Transmission Date: 20200122
  Serious: Yes (Other)
  Sender: FDA-Public Use
  Company Number: US-HORIZON-ACT-0337-2019

PATIENT
  Age: 7 Year
  Sex: Male

DRUGS (1)
  1. ACTIMMUNE [Suspect]
     Active Substance: INTERFERON GAMMA-1B
     Indication: IDIOPATHIC INTERSTITIAL PNEUMONIA
     Dosage: 0.3ML (60?G) TIW
     Route: 058

REACTIONS (2)
  - Off label use [Unknown]
  - Nephritis [Unknown]
